FAERS Safety Report 9296836 (Version 3)
Quarter: 2013Q2

REPORT INFORMATION
  Report Type: Spontaneous
  Country: US (occurrence: US)
  Receive Date: 20130517
  Receipt Date: 20130627
  Transmission Date: 20140414
  Serious: Yes (Other)
  Sender: FDA-Public Use
  Company Number: US-PFIZER INC-2013149862

PATIENT
  Sex: Male

DRUGS (2)
  1. CELEBREX [Suspect]
     Indication: ARTHRALGIA
     Dosage: 2X/DAY
  2. CELEBREX [Suspect]
     Indication: PSORIATIC ARTHROPATHY

REACTIONS (2)
  - Hypoacusis [Unknown]
  - Tinnitus [Unknown]
